FAERS Safety Report 8829694 (Version 2)
Quarter: 2013Q3

REPORT INFORMATION
  Report Type: Report from Study
  Country: IT (occurrence: IT)
  Receive Date: 20121008
  Receipt Date: 20130917
  Transmission Date: 20140515
  Serious: Yes (Hospitalization, Disabling, Other)
  Sender: FDA-Public Use
  Company Number: IT-CELGENEUS-083-21880-12093281

PATIENT
  Age: 73 Year
  Sex: 0

DRUGS (12)
  1. REVLIMID [Suspect]
     Indication: LYMPHOMA
     Dosage: 25 MILLIGRAM
     Route: 048
     Dates: start: 20110214, end: 20110306
  2. REVLIMID [Suspect]
     Dosage: 25 MILLIGRAM
     Route: 048
     Dates: start: 20110411, end: 20110506
  3. REVLIMID [Suspect]
     Dosage: 25 MILLIGRAM
     Route: 048
     Dates: start: 20110516, end: 20110605
  4. REVLIMID [Suspect]
     Dosage: 25 MILLIGRAM
     Route: 048
     Dates: start: 20110314, end: 20110403
  5. DEXAMETHASONE [Concomitant]
     Indication: LYMPHOMA
     Dosage: 25 MILLIGRAM
     Route: 048
     Dates: start: 20110214, end: 20110306
  6. DEXAMETHASONE [Concomitant]
     Dosage: 25 MILLIGRAM
     Route: 048
     Dates: start: 20110411, end: 20110506
  7. DEXAMETHASONE [Concomitant]
     Dosage: 25 MILLIGRAM
     Route: 048
     Dates: start: 20110516, end: 20110605
  8. DEXAMETHASONE [Concomitant]
     Dosage: 25 MILLIGRAM
     Route: 048
     Dates: start: 20110314, end: 20110403
  9. ASCRIPTIN [Concomitant]
     Indication: PROPHYLAXIS
     Dosage: 150 MILLIGRAM
     Route: 065
     Dates: start: 20110401, end: 20110521
  10. DIFLUCAN [Concomitant]
     Indication: PROPHYLAXIS
     Dosage: 200 MILLIGRAM
     Route: 041
     Dates: start: 20110513, end: 20110613
  11. ZOVIRAX [Concomitant]
     Indication: ANTIVIRAL PROPHYLAXIS
     Dosage: 500 MILLIGRAM
     Route: 041
     Dates: start: 20110513, end: 20110528
  12. DEPALGOS [Concomitant]
     Indication: PAIN
     Dosage: 20 MILLIGRAM
     Route: 048
     Dates: start: 20110513, end: 20110528

REACTIONS (14)
  - Venous thrombosis [Recovered/Resolved]
  - Anaemia [Not Recovered/Not Resolved]
  - Thrombocytopenia [Recovered/Resolved]
  - Fatigue [Recovered/Resolved with Sequelae]
  - Diarrhoea [Recovered/Resolved]
  - Atrial fibrillation [Recovered/Resolved]
  - Dysaesthesia [Not Recovered/Not Resolved]
  - Dysaesthesia [Not Recovered/Not Resolved]
  - Oral herpes [Recovered/Resolved]
  - Anaemia [Not Recovered/Not Resolved]
  - Leukopenia [Recovered/Resolved]
  - Oedema peripheral [Recovered/Resolved with Sequelae]
  - Diarrhoea [Unknown]
  - Fatigue [Unknown]
